FAERS Safety Report 5519897-7 (Version None)
Quarter: 2007Q4

REPORT INFORMATION
  Report Type: 
  Country: None (occurrence: None)
  Receive Date: 20071116
  Receipt Date: 20071016
  Transmission Date: 20080405
  Serious: No
  Sender: FDA-Public Use
  Company Number: A0687989A

PATIENT
  Age: 87 Year
  Sex: Male

DRUGS (4)
  1. COREG CR [Suspect]
     Indication: HYPERTENSION
     Dosage: 40MG PER DAY
     Route: 048
     Dates: start: 20070701
  2. AGGRENOX [Concomitant]
  3. SIMVASTATIN [Concomitant]
     Dosage: 40MG TEN TIMES PER DAY
  4. TRANDOLAPRIL [Concomitant]

REACTIONS (1)
  - GLOSSODYNIA [None]
